FAERS Safety Report 9665203 (Version 1)
Quarter: 2013Q4

REPORT INFORMATION
  Report Type: Spontaneous
  Country: US (occurrence: US)
  Receive Date: 20131103
  Receipt Date: 20131103
  Transmission Date: 20140711
  Serious: Yes (Hospitalization, Other)
  Sender: FDA-Public Use
  Company Number: US-JNJFOC-20131013832

PATIENT
  Sex: 0

DRUGS (1)
  1. HYDROGEN PEROXIDE [Suspect]
     Indication: PRODUCT USED FOR UNKNOWN INDICATION

REACTIONS (5)
  - Suicide attempt [Unknown]
  - Oesophagitis [Unknown]
  - Abdominal distension [Unknown]
  - Gastritis [Unknown]
  - Portal venous gas [Unknown]
